FAERS Safety Report 14328803 (Version 1)
Quarter: 2017Q4

REPORT INFORMATION
  Report Type: Report from Study
  Country: ES (occurrence: ES)
  Receive Date: 20171227
  Receipt Date: 20171227
  Transmission Date: 20180321
  Serious: Yes (Life-Threatening, Other)
  Sender: FDA-Public Use
  Company Number: ES-PFIZER INC-2017545989

PATIENT

DRUGS (2)
  1. GEMCITABINE HYDROCHLORIDE. [Suspect]
     Active Substance: GEMCITABINE HYDROCHLORIDE
     Indication: SOFT TISSUE SARCOMA
     Dosage: 800 MG/M2; FIXED-DOSE RATE OF 10 MG/M2/MIN ON DAYS 1 AND 8 EVERY 3 WEEKS; CYCLICAL
     Route: 042
  2. SIROLIMUS. [Suspect]
     Active Substance: SIROLIMUS
     Indication: SOFT TISSUE SARCOMA
     Dosage: 3MG 1X/DAY; STARTING ON DAY 2 OF CYCLE 1
     Route: 048

REACTIONS (2)
  - Large intestinal obstruction [Unknown]
  - Large intestine perforation [Unknown]
